FAERS Safety Report 13498944 (Version 1)
Quarter: 2017Q2

REPORT INFORMATION
  Report Type: Spontaneous
  Country: US (occurrence: US)
  Receive Date: 20170429
  Receipt Date: 20170429
  Transmission Date: 20170830
  Serious: Yes (Life-Threatening, Hospitalization)
  Sender: FDA-Public Use
  Company Number: None

PATIENT
  Age: 77 Year
  Sex: Male
  Weight: 99 kg

DRUGS (16)
  1. CHLORTHALIDONE. [Concomitant]
     Active Substance: CHLORTHALIDONE
  2. FERROUS SULFATE. [Concomitant]
     Active Substance: FERROUS SULFATE
  3. ZOLOFT [Concomitant]
     Active Substance: SERTRALINE HYDROCHLORIDE
  4. SYSTANE (EYE DROPS) [Concomitant]
  5. XANAX [Concomitant]
     Active Substance: ALPRAZOLAM
  6. AMIODARONE [Suspect]
     Active Substance: AMIODARONE
     Indication: VENTRICULAR TACHYCARDIA
     Dosage: ?          QUANTITY:1 TABLET(S);?
     Route: 048
     Dates: start: 20170124, end: 20170416
  7. COREG [Concomitant]
     Active Substance: CARVEDILOL
  8. FISH PILL [Concomitant]
  9. LISINOPRIL. [Concomitant]
     Active Substance: LISINOPRIL
  10. ADVAIR HFA [Concomitant]
     Active Substance: FLUTICASONE PROPIONATE\SALMETEROL XINAFOATE
  11. LIPITOR [Concomitant]
     Active Substance: ATORVASTATIN CALCIUM
  12. FLONASE [Concomitant]
     Active Substance: FLUTICASONE PROPIONATE
  13. MULTIVITAMIN [Concomitant]
     Active Substance: VITAMINS
  14. PREVACID [Concomitant]
     Active Substance: LANSOPRAZOLE
  15. ASPIRIN. [Concomitant]
     Active Substance: ASPIRIN
  16. SALINE NASAL SPRAY [Concomitant]
     Active Substance: SODIUM CHLORIDE

REACTIONS (3)
  - Pneumonia [None]
  - Pneumonitis [None]
  - Pulmonary fibrosis [None]

NARRATIVE: CASE EVENT DATE: 20170223
